FAERS Safety Report 5360325-2 (Version None)
Quarter: 2007Q2

REPORT INFORMATION
  Report Type: 
  Country: None (occurrence: None)
  Receive Date: 20070612
  Receipt Date: 20070604
  Transmission Date: 20071010
  Serious: Yes (Other)
  Sender: FDA-Public Use
  Company Number: 230880K07USA

PATIENT
  Age: 47 Year
  Sex: Female

DRUGS (6)
  1. REBIF [Suspect]
     Indication: MULTIPLE SCLEROSIS
     Dosage: 44 MCG, 3 IN 1 WEEKS, SUBCUTANEOUS
     Route: 058
     Dates: start: 20060717, end: 20061101
  2. NEXIUM [Concomitant]
  3. MORPHINE (MORPHINE) /00036301/ [Concomitant]
  4. VALIUM [Concomitant]
  5. ASPIRIN [Concomitant]
  6. CRESTOR [Concomitant]

REACTIONS (4)
  - ARTERIAL OCCLUSIVE DISEASE [None]
  - OEDEMA PERIPHERAL [None]
  - PAIN IN EXTREMITY [None]
  - SKIN DISCOLOURATION [None]
